FAERS Safety Report 9192945 (Version 2)
Quarter: 2013Q2

REPORT INFORMATION
  Report Type: Spontaneous
  Country: US (occurrence: None)
  Receive Date: 20130325
  Receipt Date: 20130514
  Transmission Date: 20140414
  Serious: Yes (Other)
  Sender: FDA-Public Use
  Company Number: E2B_00000663

PATIENT
  Age: 72 Year
  Sex: Male
  Weight: 121.56 kg

DRUGS (2)
  1. LISINOPRIL [Suspect]
     Indication: HYPERTENSION
     Dosage: (10 MG, 1 IN 1 D)
     Route: 048
     Dates: end: 20130306
  2. ACETYLSALICYLIC ACID (ASPIRIN)(TABLETS) [Concomitant]

REACTIONS (4)
  - Sinus operation [None]
  - Cough [None]
  - Increased upper airway secretion [None]
  - Urinary incontinence [None]
